FAERS Safety Report 9627672 (Version 2)
Quarter: 2013Q4

REPORT INFORMATION
  Report Type: Not Available
  Country: US (occurrence: US)
  Receive Date: 20131016
  Receipt Date: 20131016
  Transmission Date: 20140711
  Serious: Yes (Hospitalization)
  Sender: FDA-Public Use
  Company Number: US-LUNDBECK-DKLU1091049

PATIENT
  Sex: Female

DRUGS (6)
  1. SABRIL (FOR ORAL SOLUTION) [Suspect]
     Indication: INFANTILE SPASMS
     Route: 048
     Dates: start: 20130307
  2. SABRIL (FOR ORAL SOLUTION) [Suspect]
     Indication: COMPLEX PARTIAL SEIZURES
     Route: 048
     Dates: start: 20130307
  3. SABRIL (FOR ORAL SOLUTION) [Suspect]
     Indication: CONVULSION
     Dates: start: 20130307
  4. SABRIL (FOR ORAL SOLUTION) [Suspect]
  5. TOPAMAX [Concomitant]
     Indication: PRODUCT USED FOR UNKNOWN INDICATION
  6. PREDNISONE [Concomitant]
     Indication: PRODUCT USED FOR UNKNOWN INDICATION

REACTIONS (4)
  - Complex partial seizures [Not Recovered/Not Resolved]
  - Infantile spasms [Not Recovered/Not Resolved]
  - Convulsion [Unknown]
  - Drug ineffective [Unknown]
